FAERS Safety Report 12873919 (Version 1)
Quarter: 2016Q4

REPORT INFORMATION
  Report Type: Report from Study
  Country: US (occurrence: US)
  Receive Date: 20161021
  Receipt Date: 20161021
  Transmission Date: 20170207
  Serious: Yes (Hospitalization, Other)
  Sender: FDA-Public Use
  Company Number: US-B. BRAUN MEDICAL INC.-1058623

PATIENT
  Age: 55 Year
  Sex: Female

DRUGS (9)
  1. CEFEPIME [Concomitant]
     Active Substance: CEFEPIME HYDROCHLORIDE
  2. METOPROLOL. [Concomitant]
     Active Substance: METOPROLOL
  3. VANCOMYCIN HCL [Concomitant]
     Active Substance: VANCOMYCIN HYDROCHLORIDE
     Route: 048
  4. METRONIDAZOLE. [Suspect]
     Active Substance: METRONIDAZOLE
     Indication: CLOSTRIDIUM DIFFICILE COLITIS
  5. LISINOPRIL. [Concomitant]
     Active Substance: LISINOPRIL
  6. ATORVASTATIN [Concomitant]
     Active Substance: ATORVASTATIN
  7. HEPARIN [Concomitant]
     Active Substance: HEPARIN SODIUM
     Route: 058
  8. PANTOPRAZOLE [Suspect]
     Active Substance: PANTOPRAZOLE SODIUM
  9. ASPIRIN. [Concomitant]
     Active Substance: ASPIRIN

REACTIONS (1)
  - Electrocardiogram QT prolonged [None]
